FAERS Safety Report 25395319 (Version 1)
Quarter: 2025Q2

REPORT INFORMATION
  Report Type: Report from Study
  Country: US (occurrence: US)
  Receive Date: 20250604
  Receipt Date: 20250604
  Transmission Date: 20250717
  Serious: Yes (Hospitalization, Other)
  Sender: UCB
  Company Number: US-UCBSA-2024064014

PATIENT
  Age: 3 Year
  Sex: Male
  Weight: 12 kg

DRUGS (6)
  1. FINTEPLA [Suspect]
     Active Substance: FENFLURAMINE
     Indication: Severe myoclonic epilepsy of infancy
     Dates: start: 20230802
  2. FINTEPLA [Suspect]
     Active Substance: FENFLURAMINE
     Dosage: 2 MILLILITER, 2X/DAY (BID)
     Dates: start: 202409
  3. TOPAMAX [Concomitant]
     Active Substance: TOPIRAMATE
     Indication: Product used for unknown indication
     Dosage: 25 MILLIGRAM, 2X/DAY (BID)
     Dates: start: 202104
  4. ONFI [Concomitant]
     Active Substance: CLOBAZAM
     Indication: Product used for unknown indication
     Dosage: 6 MILLILITER, 2X/DAY (BID)
     Dates: start: 20210127
  5. EPIDIOLEX [Concomitant]
     Active Substance: CANNABIDIOL
     Indication: Product used for unknown indication
     Dosage: 1.2 MILLILITER, 2X/DAY (BID)
     Dates: start: 20210920
  6. DIAZEPAM [Concomitant]
     Active Substance: DIAZEPAM
     Indication: Product used for unknown indication

REACTIONS (13)
  - Seizure [Unknown]
  - Generalised tonic-clonic seizure [Unknown]
  - Tonic clonic movements [Unknown]
  - Petit mal epilepsy [Unknown]
  - Myoclonic epilepsy [Unknown]
  - Pharyngitis streptococcal [Not Recovered/Not Resolved]
  - Somnolence [Unknown]
  - Atonic seizures [Unknown]
  - Myoclonus [Unknown]
  - Vomiting [Recovering/Resolving]
  - Diarrhoea [Recovering/Resolving]
  - COVID-19 [Unknown]
  - Otitis media acute [Unknown]

NARRATIVE: CASE EVENT DATE: 20231201
